FAERS Safety Report 15622874 (Version 2)
Quarter: 2018Q4

REPORT INFORMATION
  Report Type: Spontaneous
  Country: TW (occurrence: TW)
  Receive Date: 20181115
  Receipt Date: 20181115
  Transmission Date: 20190205
  Serious: Yes (Other)
  Sender: FDA-Public Use
  Company Number: TW-PFIZER INC-2018462349

PATIENT
  Age: 60 Year
  Sex: Male

DRUGS (4)
  1. DACARBAZINE. [Suspect]
     Active Substance: DACARBAZINE
     Indication: PLEOMORPHIC LIPOSARCOMA
     Dosage: UNK UNK, CYCLIC
     Dates: end: 201404
  2. MESNA. [Suspect]
     Active Substance: MESNA
     Indication: PLEOMORPHIC LIPOSARCOMA
     Dosage: UNK, CYCLIC
     Dates: end: 201404
  3. DOXORUBICIN HCL [Suspect]
     Active Substance: DOXORUBICIN HYDROCHLORIDE
     Indication: PLEOMORPHIC LIPOSARCOMA
     Dosage: UNK UNK, CYCLIC
     Dates: end: 201404
  4. IFOSFAMIDE. [Suspect]
     Active Substance: IFOSFAMIDE
     Indication: PLEOMORPHIC LIPOSARCOMA
     Dosage: UNK UNK, CYCLIC
     Dates: end: 201404

REACTIONS (2)
  - Second primary malignancy [Unknown]
  - Extraskeletal osteosarcoma [Unknown]
